FAERS Safety Report 22665710 (Version 2)
Quarter: 2023Q4

REPORT INFORMATION
  Report Type: Report from Study
  Country: US (occurrence: US)
  Receive Date: 20230703
  Receipt Date: 20231027
  Transmission Date: 20240109
  Serious: Yes (Other)
  Sender: FDA-Public Use
  Company Number: US-ABBVIE-5311529

PATIENT
  Sex: Female

DRUGS (4)
  1. SKYRIZI [Suspect]
     Active Substance: RISANKIZUMAB-RZAA
     Indication: Psoriasis
     Dosage: WEEK 4?FORM STRENGTH: 150 MG
     Route: 058
  2. SKYRIZI [Suspect]
     Active Substance: RISANKIZUMAB-RZAA
     Indication: Psoriatic arthropathy
     Dosage: TIME INTERVAL: TOTAL: WEEK 0 RESTARTED THERAPY?FORM STRENGTH: 150 MG
     Route: 058
     Dates: start: 20230525, end: 20230525
  3. SKYRIZI [Suspect]
     Active Substance: RISANKIZUMAB-RZAA
     Dosage: OFF THERAPY FOR TWO YEARS
     Route: 058
     Dates: end: 2021
  4. SKYRIZI [Suspect]
     Active Substance: RISANKIZUMAB-RZAA
     Dosage: THEN EVERY 12 WEEKS THEREAFTER?FORM STRENGTH: 150 MG
     Route: 058
     Dates: start: 20230922

REACTIONS (6)
  - Hip fracture [Unknown]
  - Psoriasis [Unknown]
  - Memory impairment [Unknown]
  - Peripheral swelling [Recovering/Resolving]
  - Joint swelling [Recovering/Resolving]
  - Psoriasis [Recovering/Resolving]

NARRATIVE: CASE EVENT DATE: 20230101
